FAERS Safety Report 7996351-4 (Version None)
Quarter: 2011Q4

REPORT INFORMATION
  Report Type: 
  Country: None (occurrence: None)
  Receive Date: 20111220
  Receipt Date: 20111031
  Transmission Date: 20120403
  Serious: Yes (Hospitalization)
  Sender: FDA-Public Use
  Company Number: US-ROCHE-1005627

PATIENT
  Sex: Female

DRUGS (10)
  1. BONIVA [Suspect]
     Indication: OSTEOPOROSIS
     Route: 048
     Dates: start: 20060420
  2. ACTONEL [Suspect]
     Indication: OSTEOPOROSIS
     Route: 048
     Dates: start: 20031103, end: 20060420
  3. LYRICA [Concomitant]
     Indication: NEUROPATHY PERIPHERAL
     Dates: start: 20050101
  4. POTASSIUM CHLORIDE [Concomitant]
     Indication: ATRIAL FIBRILLATION
     Route: 048
     Dates: start: 19940101
  5. METOPROLOL TARTRATE [Concomitant]
     Indication: ATRIAL FIBRILLATION
     Route: 048
     Dates: start: 19940101
  6. LANOXIN [Concomitant]
     Indication: MITRAL VALVE REPLACEMENT
     Route: 048
     Dates: start: 19940101
  7. COUMADIN [Concomitant]
     Indication: ATRIAL FIBRILLATION
     Route: 048
     Dates: start: 19940101
  8. EVISTA [Suspect]
     Indication: OSTEOPENIA
     Route: 048
     Dates: start: 20031103, end: 20031103
  9. LASIX [Concomitant]
     Indication: ATRIAL FIBRILLATION
     Route: 048
     Dates: start: 19940101
  10. PREMARIN [Suspect]
     Indication: PRODUCT USED FOR UNKNOWN INDICATION

REACTIONS (1)
  - FEMUR FRACTURE [None]
